FAERS Safety Report 17685294 (Version 1)
Quarter: 2020Q2

REPORT INFORMATION
  Report Type: Spontaneous
  Country: US (occurrence: US)
  Receive Date: 20200417
  Receipt Date: 20200417
  Transmission Date: 20200714
  Serious: No
  Sender: FDA-Public Use
  Company Number: None

PATIENT
  Age: 52 Year
  Sex: Male
  Weight: 103.5 kg

DRUGS (1)
  1. HYDROXYCHLOROQUINE [Suspect]
     Active Substance: HYDROXYCHLOROQUINE
     Indication: CORONAVIRUS INFECTION
     Dates: start: 20200403, end: 20200407

REACTIONS (5)
  - Dyspnoea [None]
  - Heart rate irregular [None]
  - Chest pain [None]
  - Palpitations [None]
  - Pneumonia [None]

NARRATIVE: CASE EVENT DATE: 20200407
